FAERS Safety Report 25309522 (Version 1)
Quarter: 2025Q2

REPORT INFORMATION
  Report Type: Spontaneous
  Country: US (occurrence: US)
  Receive Date: 20250513
  Receipt Date: 20250513
  Transmission Date: 20250716
  Serious: No
  Sender: UCB
  Company Number: US-UCBSA-2024035706

PATIENT
  Sex: Female
  Weight: 85.714 kg

DRUGS (1)
  1. CIMZIA [Suspect]
     Active Substance: CERTOLIZUMAB PEGOL
     Indication: Psoriatic arthropathy
     Dosage: 400 MILLIGRAM, EV 2 WEEKS(QOW) (INJECT THE CONTENTS OF 2 SYRINGES (400 MG) UNDER THE SKIN ON WEEK 0,
     Route: 058

REACTIONS (1)
  - Drug ineffective [Unknown]
